FAERS Safety Report 6836683-6 (Version None)
Quarter: 2010Q3

REPORT INFORMATION
  Report Type: 
  Country: None (occurrence: None)
  Receive Date: 20100713
  Receipt Date: 20100630
  Transmission Date: 20110219
  Serious: Yes (Other)
  Sender: FDA-Public Use
  Company Number: PHFR2010GB01185

PATIENT

DRUGS (3)
  1. VOLTAREN [Suspect]
     Indication: BACK PAIN
  2. CEFUROXIME [Concomitant]
     Indication: STAPHYLOCOCCAL INFECTION
  3. DAPTOMYCIN [Concomitant]
     Indication: STAPHYLOCOCCAL INFECTION
     Dosage: UNK
     Dates: start: 20100618

REACTIONS (5)
  - ATELECTASIS [None]
  - BLOOD CREATINE PHOSPHOKINASE INCREASED [None]
  - BLOOD CREATININE INCREASED [None]
  - C-REACTIVE PROTEIN INCREASED [None]
  - STAPHYLOCOCCUS TEST POSITIVE [None]
